FAERS Safety Report 5828507-0 (Version None)
Quarter: 2008Q3

REPORT INFORMATION
  Report Type: 
  Country: None (occurrence: None)
  Receive Date: 20080729
  Receipt Date: 20080729
  Transmission Date: 20090109
  Serious: Yes (Disabling, Other)
  Sender: FDA-Public Use
  Company Number: None

PATIENT
  Age: 30 Year
  Sex: Female
  Weight: 81.6475 kg

DRUGS (1)
  1. CYMBALTA [Suspect]
     Indication: DEPRESSION
     Dosage: 1 60MG PILL ONCE DAILY PO
     Route: 048
     Dates: start: 20080301, end: 20080723

REACTIONS (6)
  - ALCOHOL POISONING [None]
  - ALCOHOLISM [None]
  - DIZZINESS [None]
  - DRUG WITHDRAWAL SYNDROME [None]
  - TREMOR [None]
  - VISION BLURRED [None]
